FAERS Safety Report 15678312 (Version 1)
Quarter: 2018Q4

REPORT INFORMATION
  Report Type: Spontaneous
  Country: US (occurrence: US)
  Receive Date: 20181201
  Receipt Date: 20181201
  Transmission Date: 20190205
  Serious: Yes (Hospitalization, Other)
  Sender: FDA-Public Use
  Company Number: US-MICRO LABS LIMITED-ML2018-02592

PATIENT
  Age: 63 Year
  Sex: Male

DRUGS (1)
  1. TRANEXAMIC ACID. [Suspect]
     Active Substance: TRANEXAMIC ACID
     Route: 037

REACTIONS (7)
  - Heart rate increased [Recovered/Resolved]
  - Incorrect route of product administration [Recovered/Resolved]
  - Respiratory rate increased [Recovered/Resolved]
  - Hypoxia [Recovered/Resolved]
  - Myoclonus [Recovered/Resolved]
  - Blood pressure increased [Recovered/Resolved]
  - Wrong product administered [Recovered/Resolved]
